FAERS Safety Report 10256487 (Version 1)
Quarter: 2014Q2

REPORT INFORMATION
  Report Type: Report from Study
  Country: DE (occurrence: DE)
  Receive Date: 20140624
  Receipt Date: 20140624
  Transmission Date: 20141212
  Serious: Yes (Hospitalization)
  Sender: FDA-Public Use
  Company Number: DE-JNJFOC-20130806088

PATIENT
  Sex: Male
  Weight: 95 kg

DRUGS (10)
  1. RIVAROXABAN [Suspect]
     Indication: ATRIAL FIBRILLATION
     Route: 048
     Dates: start: 20121009, end: 20130525
  2. RIVAROXABAN [Suspect]
     Indication: CEREBROVASCULAR ACCIDENT PROPHYLAXIS
     Route: 048
     Dates: start: 20121009, end: 20130525
  3. MARCUMAR [Concomitant]
     Route: 065
     Dates: start: 20130526
  4. SIMVAHEXAL [Concomitant]
     Route: 065
     Dates: start: 200908
  5. TORASEMID [Concomitant]
     Route: 065
     Dates: start: 2013
  6. OPIPRAMOL [Concomitant]
     Route: 065
     Dates: start: 201210
  7. DIOVAN [Concomitant]
     Route: 065
     Dates: start: 201210
  8. PHENOXYMETHYLPENICILLIN [Concomitant]
     Route: 065
     Dates: start: 201301, end: 20130410
  9. ASS [Concomitant]
     Route: 065
     Dates: start: 20011025, end: 20130525
  10. BELOC ZOK [Concomitant]
     Route: 065
     Dates: start: 200703

REACTIONS (1)
  - Cerebrovascular accident [Recovered/Resolved]
